FAERS Safety Report 25552507 (Version 1)
Quarter: 2025Q3

REPORT INFORMATION
  Report Type: Spontaneous
  Country: EU (occurrence: EU)
  Receive Date: 20250715
  Receipt Date: 20250715
  Transmission Date: 20251020
  Serious: Yes (Hospitalization)
  Sender: CHEPLAPHARM
  Company Number: None

PATIENT
  Age: 1 Day
  Sex: Female
  Weight: 3.7 kg

DRUGS (2)
  1. QUETIAPINE [Suspect]
     Active Substance: QUETIAPINE
     Indication: Product used for unknown indication
     Dosage: 1DD2?DAILY DOSE: 25 MILLIGRAM
     Route: 064
     Dates: start: 20250101
  2. TEMAZEPAM [Concomitant]
     Active Substance: TEMAZEPAM

REACTIONS (2)
  - Infantile apnoea [Recovered/Resolved]
  - Foetal exposure during pregnancy [Recovered/Resolved]
